FAERS Safety Report 14126830 (Version 2)
Quarter: 2017Q4

REPORT INFORMATION
  Report Type: Spontaneous
  Country: US (occurrence: US)
  Receive Date: 20171025
  Receipt Date: 20171103
  Transmission Date: 20180321
  Serious: No
  Sender: FDA-Public Use
  Company Number: US-MYLANLABS-2017M1067100

PATIENT
  Age: 66 Year
  Sex: Female
  Weight: 49 kg

DRUGS (3)
  1. DYMISTA [Suspect]
     Active Substance: AZELASTINE HYDROCHLORIDE\FLUTICASONE PROPIONATE
     Dosage: 1 DF, QD (1 SP IN EACH NOSTRIL)
     Route: 045
     Dates: start: 201709
  2. DYMISTA [Suspect]
     Active Substance: AZELASTINE HYDROCHLORIDE\FLUTICASONE PROPIONATE
     Indication: RHINITIS ALLERGIC
     Dosage: 1 DF, BID (1 SP EACH NOSTRIL)
     Route: 045
     Dates: start: 20170905, end: 201709
  3. LISINOPRIL. [Concomitant]
     Active Substance: LISINOPRIL
     Indication: HYPERTENSION
     Dosage: UNK

REACTIONS (2)
  - Insomnia [Recovered/Resolved]
  - Energy increased [Recovered/Resolved]

NARRATIVE: CASE EVENT DATE: 201709
